FAERS Safety Report 5625590-2 (Version None)
Quarter: 2008Q1

REPORT INFORMATION
  Report Type: 
  Country: None (occurrence: None)
  Receive Date: 20080214
  Receipt Date: 20080116
  Transmission Date: 20080703
  Serious: No
  Sender: FDA-Public Use
  Company Number: US-BAYER-200811803NA

PATIENT
  Age: 29 Year
  Sex: Female
  Weight: 62 kg

DRUGS (2)
  1. MIRENA [Suspect]
     Indication: CONTRACEPTION
     Route: 015
     Dates: start: 20070925, end: 20080114
  2. PROZAC [Concomitant]

REACTIONS (4)
  - ABDOMINAL PAIN [None]
  - DYSPAREUNIA [None]
  - IUCD COMPLICATION [None]
  - VAGINAL HAEMORRHAGE [None]
